FAERS Safety Report 7035765-6 (Version None)
Quarter: 2010Q4

REPORT INFORMATION
  Report Type: 
  Country: None (occurrence: None)
  Receive Date: 20101008
  Receipt Date: 20100917
  Transmission Date: 20110411
  Serious: Yes (Hospitalization)
  Sender: FDA-Public Use
  Company Number: US-BAYER-201014066NA

PATIENT
  Age: 20 Year
  Sex: Female
  Weight: 79 kg

DRUGS (4)
  1. YAZ [Suspect]
     Indication: PRODUCT USED FOR UNKNOWN INDICATION
     Route: 048
  2. YASMIN [Suspect]
     Indication: ACNE
     Route: 048
     Dates: start: 20060801, end: 20090501
  3. OCELLA [Suspect]
     Indication: ACNE
     Route: 048
     Dates: start: 20060801, end: 20090501
  4. ZITHROMAX [Concomitant]

REACTIONS (7)
  - ABDOMINAL PAIN [None]
  - ABDOMINAL PAIN UPPER [None]
  - BILIARY COLIC [None]
  - CHOLECYSTITIS CHRONIC [None]
  - CHOLELITHIASIS [None]
  - EATING DISORDER [None]
  - GALLBLADDER CHOLESTEROLOSIS [None]
